FAERS Safety Report 4382377-9 (Version None)
Quarter: 2004Q2

REPORT INFORMATION
  Report Type: 
  Country: None (occurrence: None)
  Receive Date: 20040616
  Receipt Date: 20040527
  Transmission Date: 20050107
  Serious: Yes (Hospitalization)
  Sender: FDA-Public Use
  Company Number: F01200401264

PATIENT
  Age: 75 Year
  Sex: Male

DRUGS (4)
  1. (OXALIPLATIN) - SOLUTION - 85 MG/M2 [Suspect]
     Indication: COLORECTAL CANCER
     Dosage: 85MG/M2 Q2W, INTRAVENOUS NOS
     Route: 042
     Dates: start: 20040510, end: 20040510
  2. FLUOROURACIL [Suspect]
     Dosage: 500 MG/M2 BOLUS ON D1, D8 AND D15, Q4W; INTRAVENOUS BOLUS/A FEW MINUTES
     Route: 040
     Dates: start: 20040510, end: 20040510
  3. LEUCOVORIN CALCIUM [Suspect]
     Dosage: 20 MG/M2 ON D1, D8 AND D15, Q4W; INTRAVENOUS BOLUS/ A FEW MINUTES
     Route: 040
     Dates: start: 20040510, end: 20040510
  4. AVASTIN [Suspect]
     Dosage: 5 MG/KG OVER 30-90 MINUTES IV UBFYSUIB IB DAT 1M 15M Q4W; INTRAVENOUS NOS
     Route: 042
     Dates: start: 20040510, end: 20040510

REACTIONS (1)
  - DUODENAL ULCER PERFORATION [None]
